FAERS Safety Report 4361456-6 (Version None)
Quarter: 2004Q2

REPORT INFORMATION
  Report Type: 
  Country: None (occurrence: None)
  Receive Date: 20040521
  Receipt Date: 20030620
  Transmission Date: 20050107
  Serious: No
  Sender: FDA-Public Use
  Company Number: US-GLAXOSMITHKLINE-A0413281A

PATIENT
  Age: 51 Year
  Sex: Female

DRUGS (4)
  1. ZYBAN [Suspect]
     Dosage: 150MG TWICE PER DAY
     Route: 048
     Dates: start: 20030505
  2. STOOL SOFTENER [Concomitant]
  3. TITRALAC [Concomitant]
  4. NICODERM [Concomitant]
     Route: 061

REACTIONS (3)
  - CONSTIPATION [None]
  - EJACULATION DELAYED [None]
  - SEXUAL DYSFUNCTION [None]
